FAERS Safety Report 21988491 (Version 1)
Quarter: 2023Q1

REPORT INFORMATION
  Report Type: Report from Study
  Country: GB (occurrence: GB)
  Receive Date: 20230214
  Receipt Date: 20230214
  Transmission Date: 20230417
  Serious: Yes (Hospitalization)
  Sender: FDA-Public Use
  Company Number: GB-TEVA-2023-GB-2855913

PATIENT
  Age: 77 Year
  Sex: Male

DRUGS (1)
  1. OMEPRAZOLE [Suspect]
     Active Substance: OMEPRAZOLE
     Indication: Drug therapy
     Route: 065

REACTIONS (2)
  - Photosensitivity reaction [Unknown]
  - Subacute cutaneous lupus erythematosus [Unknown]
